FAERS Safety Report 9054023 (Version 2)
Quarter: 2013Q1

REPORT INFORMATION
  Report Type: Spontaneous
  Country: JP (occurrence: JP)
  Receive Date: 20130208
  Receipt Date: 20130214
  Transmission Date: 20140127
  Serious: No
  Sender: FDA-Public Use
  Company Number: JP-PFIZER INC-2013051940

PATIENT
  Age: 6 Decade
  Sex: Female

DRUGS (1)
  1. SOLANAX [Suspect]
     Dosage: UNK

REACTIONS (1)
  - Photophobia [Unknown]
